FAERS Safety Report 7257402-8 (Version None)
Quarter: 2011Q1

REPORT INFORMATION
  Report Type: 
  Country: None (occurrence: None)
  Receive Date: 20110129
  Receipt Date: 20100728
  Transmission Date: 20110831
  Serious: No
  Sender: FDA-Public Use
  Company Number: US-ABBOTT-10P-163-0661550-00

PATIENT
  Age: 80 Year
  Sex: Female

DRUGS (1)
  1. HUMIRA [Suspect]
     Indication: RHEUMATOID ARTHRITIS
     Dates: start: 20091001

REACTIONS (5)
  - NAUSEA [None]
  - ABDOMINAL PAIN [None]
  - DIARRHOEA [None]
  - DRUG INEFFECTIVE [None]
  - ARTHROPATHY [None]
